FAERS Safety Report 4929892-4 (Version None)
Quarter: 2006Q1

REPORT INFORMATION
  Report Type: 
  Country: None (occurrence: None)
  Receive Date: 20060227
  Receipt Date: 20051230
  Transmission Date: 20060701
  Serious: Yes (Other)
  Sender: FDA-Public Use
  Company Number: 2005030764

PATIENT
  Age: 75 Year
  Sex: Male
  Weight: 86.1834 kg

DRUGS (8)
  1. DETROL LA [Suspect]
     Indication: POLLAKIURIA
     Dosage: 4 MG (4 MG, 1 IN 1 D), ORAL
     Route: 048
     Dates: start: 20040101
  2. BEXTRA [Suspect]
     Indication: ARTHRITIS
     Dosage: 10 MG (10 MG, 1 IN 1 D), ORAL
     Route: 048
     Dates: start: 20010101
  3. NEURONTIN [Concomitant]
  4. LANOXIN [Concomitant]
  5. ALL OTHER THERAPEUTIC PRODUCTS (ALL OTHER THERAPEUTIC PRODUCTS) [Concomitant]
  6. MOTRIN [Concomitant]
  7. ASPIRIN [Concomitant]
  8. VITAMINS (VITAMINS) [Concomitant]

REACTIONS (19)
  - AMYOTROPHIC LATERAL SCLEROSIS [None]
  - ASTHENIA [None]
  - BACK PAIN [None]
  - CARDIAC OPERATION [None]
  - CONDITION AGGRAVATED [None]
  - CORONARY ARTERY OCCLUSION [None]
  - DRUG INEFFECTIVE [None]
  - GUILLAIN-BARRE SYNDROME [None]
  - INSOMNIA [None]
  - MICTURITION URGENCY [None]
  - MUSCLE TWITCHING [None]
  - NERVE COMPRESSION [None]
  - NERVOUSNESS [None]
  - NEUROPATHY [None]
  - PERONEAL NERVE PALSY [None]
  - STENT PLACEMENT [None]
  - SURGERY [None]
  - URINARY TRACT OPERATION [None]
  - WEIGHT DECREASED [None]
